FAERS Safety Report 16722947 (Version 2)
Quarter: 2019Q3

REPORT INFORMATION
  Report Type: Spontaneous
  Country: US (occurrence: US)
  Receive Date: 20190821
  Receipt Date: 20190822
  Transmission Date: 20191005
  Serious: No
  Sender: FDA-Public Use
  Company Number: US-JNJFOC-20190821082

PATIENT
  Age: 70 Year
  Sex: Female
  Weight: 81.72 kg

DRUGS (1)
  1. TYLENOL [Suspect]
     Active Substance: ACETAMINOPHEN
     Indication: ARTHRALGIA
     Dosage: 2 CAPLETS 3 TIMES DAILY
     Route: 048
     Dates: end: 20190816

REACTIONS (1)
  - Therapeutic product effect incomplete [Unknown]
